FAERS Safety Report 5817745-9 (Version None)
Quarter: 2008Q3

REPORT INFORMATION
  Report Type: 
  Country: None (occurrence: None)
  Receive Date: 20080722
  Receipt Date: 20080721
  Transmission Date: 20090109
  Serious: Yes (Death)
  Sender: FDA-Public Use
  Company Number: PHHY2008CH14543

PATIENT
  Age: 25 Year
  Sex: Male

DRUGS (3)
  1. CLOZAPINE [Suspect]
     Indication: SCHIZOPHRENIA
     Dosage: 300 MG/DAY
     Dates: start: 20051001
  2. TEMESTA [Suspect]
     Dosage: 15 MG/DAY
     Dates: start: 20071124
  3. METHADONE HCL [Suspect]

REACTIONS (5)
  - ARRHYTHMIA [None]
  - CARDIAC ARREST [None]
  - DRUG ABUSE [None]
  - DRUG LEVEL INCREASED [None]
  - DRUG TOXICITY [None]
